FAERS Safety Report 9980005 (Version 1)
Quarter: 2014Q1

REPORT INFORMATION
  Report Type: Spontaneous
  Country: US (occurrence: None)
  Receive Date: 20140305
  Receipt Date: 20140305
  Transmission Date: 20141002
  Serious: Yes (Other)
  Sender: FDA-Public Use
  Company Number: None

PATIENT
  Age: 57 Year
  Sex: Female

DRUGS (2)
  1. GENERIC REMERON [Suspect]
     Indication: DEPRESSION
     Route: 048
     Dates: start: 20120207, end: 20120220
  2. GENERIC SOLUTAB REMERON [Suspect]

REACTIONS (10)
  - Pruritus [None]
  - Abdominal discomfort [None]
  - Formication [None]
  - Depression [None]
  - Anxiety [None]
  - Insomnia [None]
  - Crying [None]
  - Drug intolerance [None]
  - Fatigue [None]
  - Product substitution issue [None]
